FAERS Safety Report 4668421-X (Version None)
Quarter: 2005Q2

REPORT INFORMATION
  Report Type: 
  Country: None (occurrence: None)
  Receive Date: 20050519
  Receipt Date: 20050506
  Transmission Date: 20051028
  Serious: Yes (Death)
  Sender: FDA-Public Use
  Company Number: HQWYE618501APR05

PATIENT
  Age: 49 Year
  Sex: Male
  Weight: 97.16 kg

DRUGS (5)
  1. RAPAMUNE [Suspect]
     Dates: start: 20030901
  2. LANTUS [Concomitant]
  3. LASIX [Concomitant]
  4. LISINOPRIL [Concomitant]
  5. ZOLOFT [Concomitant]

REACTIONS (9)
  - ALANINE AMINOTRANSFERASE INCREASED [None]
  - ASPARTATE AMINOTRANSFERASE INCREASED [None]
  - BLOOD CHOLESTEROL INCREASED [None]
  - BLOOD CREATININE INCREASED [None]
  - BLOOD TRIGLYCERIDES INCREASED [None]
  - BLOOD UREA INCREASED [None]
  - LOW DENSITY LIPOPROTEIN INCREASED [None]
  - MYOCARDIAL INFARCTION [None]
  - WHITE BLOOD CELL COUNT DECREASED [None]
